FAERS Safety Report 6288476-9 (Version None)
Quarter: 2009Q3

REPORT INFORMATION
  Report Type: 
  Country: None (occurrence: None)
  Receive Date: 20090729
  Receipt Date: 20090715
  Transmission Date: 20100115
  Serious: Yes (Hospitalization)
  Sender: FDA-Public Use
  Company Number: US-EISAI INC.-E7272-00023-CLI-US

PATIENT
  Sex: Female
  Weight: 55 kg

DRUGS (2)
  1. ONTAK [Suspect]
     Dosage: UNKNOWN
     Route: 042
     Dates: start: 20090518, end: 20090522
  2. RITUXIMAB [Suspect]
     Dosage: UNKNOWN
     Route: 042
     Dates: start: 20090518, end: 20090526

REACTIONS (6)
  - CAPILLARY LEAK SYNDROME [None]
  - CYTOKINE RELEASE SYNDROME [None]
  - DEHYDRATION [None]
  - ENTERITIS [None]
  - MUSCULAR WEAKNESS [None]
  - SMALL INTESTINAL OBSTRUCTION [None]
